FAERS Safety Report 8771452 (Version 1)
Quarter: 2012Q4

REPORT INFORMATION
  Report Type: 
  Country: US (occurrence: US)
  Receive Date: 20120906
  Receipt Date: 20120906
  Transmission Date: 20130627
  Serious: No
  Sender: FDA-Public Use
  Company Number: US-B.I. PHARMACEUTICALS,INC./RIDGEFIELD-2012-BP-21227BP

PATIENT
  Age: 88 Year
  Sex: Female

DRUGS (11)
  1. PRADAXA [Suspect]
     Indication: CEREBROVASCULAR ACCIDENT
     Dosage: 150 mg
     Route: 048
     Dates: start: 20120728, end: 20120806
  2. COUMADIN [Concomitant]
     Indication: CEREBROVASCULAR ACCIDENT PROPHYLAXIS
     Route: 048
     Dates: start: 20120810
  3. FAMODINE [Concomitant]
     Dosage: 20 mg
     Route: 048
     Dates: start: 2010
  4. COZAAR [Concomitant]
     Indication: HYPERTENSION
     Dosage: 50 mg
     Route: 048
     Dates: start: 2008
  5. PLAVIX [Concomitant]
     Indication: ANTICOAGULANT THERAPY
     Dosage: 75 mg
     Route: 048
     Dates: start: 2010
  6. AMLODIPINE [Concomitant]
     Indication: HYPERTENSION
     Dosage: 5 mg
     Route: 048
     Dates: start: 2010
  7. CALCIUM + D3 [Concomitant]
     Indication: PAIN IN EXTREMITY
     Dosage: 1200 mg
     Route: 048
     Dates: start: 2010
  8. TECTURNA [Concomitant]
     Indication: CARDIAC DISORDER
     Dosage: 300 mg
     Route: 048
  9. BYSTOLIC [Concomitant]
     Indication: HYPERTENSION
     Dosage: 10 mg
     Route: 048
     Dates: start: 2010
  10. LOVASTATIN [Concomitant]
     Indication: BLOOD CHOLESTEROL INCREASED
     Dosage: 20 mg
     Route: 048
     Dates: start: 2010
  11. LOVAZA [Concomitant]
     Indication: CARDIAC DISORDER
     Route: 048
     Dates: start: 2010

REACTIONS (2)
  - Headache [Recovered/Resolved]
  - Oedema peripheral [Not Recovered/Not Resolved]
